FAERS Safety Report 15716054 (Version 1)
Quarter: 2018Q4

REPORT INFORMATION
  Report Type: Spontaneous
  Country: CA (occurrence: CA)
  Receive Date: 20181213
  Receipt Date: 20181213
  Transmission Date: 20190205
  Serious: Yes (Life-Threatening, Hospitalization)
  Sender: FDA-Public Use
  Company Number: CA-TEVA-2018-CA-987182

PATIENT
  Age: 61 Year
  Sex: Male
  Weight: 74 kg

DRUGS (11)
  1. RAMIPRIL. [Suspect]
     Active Substance: RAMIPRIL
     Dosage: 7.5 MILLIGRAM DAILY;
     Route: 048
  2. ASPIRIN COATED [Concomitant]
     Active Substance: ASPIRIN
  3. RANITIDINE. [Concomitant]
     Active Substance: RANITIDINE
  4. CLOPIDOGREL [Concomitant]
     Active Substance: CLOPIDOGREL BISULFATE
  5. FRAGMIN [Concomitant]
     Active Substance: DALTEPARIN SODIUM
  6. NPH INSULIN [Concomitant]
     Active Substance: INSULIN BEEF
  7. INSULIN REGULAR [Concomitant]
     Active Substance: INSULIN NOS
  8. METOPROLOL. [Concomitant]
     Active Substance: METOPROLOL
  9. RAMIPRIL. [Suspect]
     Active Substance: RAMIPRIL
     Indication: ACUTE CORONARY SYNDROME
     Dosage: 5 MILLIGRAM DAILY;
     Route: 048
  10. ATORVASTATIN CALCIUM. [Concomitant]
     Active Substance: ATORVASTATIN CALCIUM
  11. METFORMIN [Concomitant]
     Active Substance: METFORMIN HYDROCHLORIDE

REACTIONS (5)
  - Dyspnoea [Unknown]
  - White blood cell count increased [Unknown]
  - Angioedema [Unknown]
  - Platelet count increased [Unknown]
  - Haemoglobin decreased [Unknown]
